FAERS Safety Report 8590210-4 (Version None)
Quarter: 2012Q3

REPORT INFORMATION
  Report Type: 
  Country: None (occurrence: None)
  Receive Date: 20120813
  Receipt Date: 20120712
  Transmission Date: 20120928
  Serious: No
  Sender: FDA-Public Use
  Company Number: US-009507513-1207USA011047

PATIENT

DRUGS (1)
  1. MIRALAX [Suspect]
     Indication: INFREQUENT BOWEL MOVEMENTS
     Dosage: 17 G, QD
     Route: 048
     Dates: start: 20120529, end: 20120606

REACTIONS (1)
  - DRUG INEFFECTIVE [None]
